FAERS Safety Report 19751407 (Version 3)
Quarter: 2021Q4

REPORT INFORMATION
  Report Type: Report from Study
  Country: US (occurrence: US)
  Receive Date: 20210826
  Receipt Date: 20211022
  Transmission Date: 20220303
  Serious: No
  Sender: FDA-Public Use
  Company Number: NVSC2021US189329

PATIENT
  Age: 10 Year
  Sex: Male

DRUGS (3)
  1. COSENTYX [Suspect]
     Active Substance: SECUKINUMAB
     Indication: Psoriasis
     Dosage: 75 MG, QW (ONCE WEEKLY FOR FIVE WEEK)
     Route: 058
     Dates: start: 20210715
  2. COSENTYX [Suspect]
     Active Substance: SECUKINUMAB
     Dosage: 75 MG, Q4W (ONCE EVERY 4 WEEKS)
     Route: 058
  3. COSENTYX [Suspect]
     Active Substance: SECUKINUMAB
     Dosage: 75 MG/KG, QMO (BENEATH THE SKIN)
     Route: 058
     Dates: start: 20210707, end: 20210914

REACTIONS (6)
  - Accident at home [Unknown]
  - Flatulence [Unknown]
  - Dyspepsia [Unknown]
  - Injection site pain [Unknown]
  - Diarrhoea [Unknown]
  - Burning sensation [Unknown]

NARRATIVE: CASE EVENT DATE: 20210707
